FAERS Safety Report 10198395 (Version 1)
Quarter: 2014Q2

REPORT INFORMATION
  Report Type: Spontaneous
  Country: US (occurrence: None)
  Receive Date: 20140523
  Receipt Date: 20140523
  Transmission Date: 20141212
  Serious: Yes (Other)
  Sender: FDA-Public Use
  Company Number: None

PATIENT
  Age: 62 Year
  Sex: Male
  Weight: 127.92 kg

DRUGS (1)
  1. HUMALOG [Suspect]

REACTIONS (2)
  - Product quality issue [None]
  - Device defective [None]
